FAERS Safety Report 20430672 (Version 1)
Quarter: 2022Q1

REPORT INFORMATION
  Report Type: Report from Study
  Country: FR (occurrence: FR)
  Receive Date: 20220204
  Receipt Date: 20220204
  Transmission Date: 20220423
  Serious: Yes (Life-Threatening, Other)
  Sender: FDA-Public Use
  Company Number: FR-SERVIER-S21001443

PATIENT

DRUGS (19)
  1. PEGASPARGASE [Suspect]
     Active Substance: PEGASPARGASE
     Indication: Acute lymphocytic leukaemia
     Dosage: 2125 IU, QD, D8, D36, D64
     Route: 042
     Dates: start: 20201008, end: 20210118
  2. VINCRISTINE [Suspect]
     Active Substance: VINCRISTINE
     Indication: Acute lymphocytic leukaemia
     Dosage: 1.3 MG, D1, D8, D29, D36, D57, D64
     Route: 042
     Dates: start: 20201001, end: 20201208
  3. METHOTREXATE [Suspect]
     Active Substance: METHOTREXATE
     Indication: Acute lymphocytic leukaemia
     Dosage: 12 MG, D2, D30, D58
     Route: 037
     Dates: start: 20201002, end: 20201202
  4. METHOTREXATE [Suspect]
     Active Substance: METHOTREXATE
     Dosage: 21 MG, (D8, D15, D22, D36, D43, D50)
     Route: 048
     Dates: start: 20201008
  5. DEXAMETHASONE [Suspect]
     Active Substance: DEXAMETHASONE
     Indication: Acute lymphocytic leukaemia
     Dosage: 5 MG, D1 TO D5, D29 TO D33, D57 TO D61
     Route: 048
     Dates: start: 20201001, end: 20201205
  6. MERCAPTOPURINE [Suspect]
     Active Substance: MERCAPTOPURINE
     Indication: Acute lymphocytic leukaemia
     Dosage: 42 MG, D1 TO D21, D29 TO D50, D57 TO D78
     Route: 048
     Dates: start: 20201001
  7. TN UNSPECIFIED [Concomitant]
     Indication: Product used for unknown indication
     Dosage: UNK
     Route: 065
  8. TN UNSPECIFIED [Concomitant]
     Indication: Product used for unknown indication
     Dosage: UNK
     Route: 065
  9. TN UNSPECIFIED [Concomitant]
     Indication: Product used for unknown indication
     Dosage: UNK
     Route: 065
  10. PIPERACILLIN SODIUM\TAZOBACTAM SODIUM [Concomitant]
     Active Substance: PIPERACILLIN SODIUM\TAZOBACTAM SODIUM
     Indication: Product used for unknown indication
     Route: 065
  11. TN UNSPECIFIED [Concomitant]
     Indication: Product used for unknown indication
     Route: 065
  12. AMIKACIN SULFATE [Concomitant]
     Active Substance: AMIKACIN SULFATE
     Indication: Product used for unknown indication
     Route: 065
  13. TN UNSPECIFIED [Concomitant]
     Indication: Product used for unknown indication
     Route: 065
  14. TN UNSPECIFIED [Concomitant]
     Indication: Product used for unknown indication
     Route: 065
  15. TN UNSPECIFIED [Concomitant]
     Indication: Product used for unknown indication
     Route: 065
  16. TN UNSPECIFIED [Concomitant]
     Indication: Product used for unknown indication
     Route: 065
  17. TN UNSPECIFIED [Concomitant]
     Indication: Product used for unknown indication
     Route: 065
  18. TN UNSPECIFIED [Concomitant]
     Indication: Product used for unknown indication
     Route: 065
  19. TN UNSPECIFIED [Concomitant]
     Indication: Product used for unknown indication
     Route: 065

REACTIONS (6)
  - Septic shock [Recovered/Resolved]
  - Rectal haemorrhage [Recovered/Resolved]
  - Pancreatitis [Recovered/Resolved]
  - Venoocclusive disease [Recovered/Resolved]
  - Bronchopulmonary aspergillosis [Recovered/Resolved]
  - Candida infection [Recovered/Resolved]

NARRATIVE: CASE EVENT DATE: 20201216
